FAERS Safety Report 5162799-9 (Version None)
Quarter: 2006Q4

REPORT INFORMATION
  Report Type: 
  Country: None (occurrence: None)
  Receive Date: 20061121
  Receipt Date: 20061108
  Transmission Date: 20070319
  Serious: Yes (Other)
  Sender: FDA-Public Use
  Company Number: US-2006-034906

PATIENT
  Age: 70 Year
  Sex: Female

DRUGS (2)
  1. MAGNEVIST [Suspect]
     Indication: ANGIOGRAM
     Dosage: 40 ML, 1 DOSE
     Dates: start: 20040624, end: 20040624
  2. THALIDOMIDE [Concomitant]

REACTIONS (4)
  - IMMOBILE [None]
  - NEPHROGENIC FIBROSING DERMOPATHY [None]
  - SKIN GRAFT [None]
  - SKIN ULCER [None]
